FAERS Safety Report 15655940 (Version 1)
Quarter: 2018Q4

REPORT INFORMATION
  Report Type: Report from Study
  Country: FR (occurrence: FR)
  Receive Date: 20181126
  Receipt Date: 20181126
  Transmission Date: 20190205
  Serious: Yes (Life-Threatening, Hospitalization)
  Sender: FDA-Public Use
  Company Number: FR-SAKK-2018SA320782AA

PATIENT
  Age: 86 Year
  Sex: Female
  Weight: 59 kg

DRUGS (13)
  1. PLAVIX [Concomitant]
     Active Substance: CLOPIDOGREL BISULFATE
     Dosage: 75 MG, 1X/DAY
  2. MOTILIUM [DOMPERIDONE MALEATE] [Concomitant]
     Dosage: 20 MG (10MG X 2), 3X/DAY
  3. GUTRON [Concomitant]
     Active Substance: MIDODRINE
     Dosage: 2.5 MG, 2X/DAY
  4. GUTRON [Concomitant]
     Active Substance: MIDODRINE
     Dosage: 2.5 MG, 2X/DAY
  5. DIFFU K [Concomitant]
     Active Substance: POTASSIUM CHLORIDE
     Dosage: 1200 MG (600MG X 2), 3X/DAY
  6. LAROXYL [Suspect]
     Active Substance: AMITRIPTYLINE HYDROCHLORIDE
     Indication: PRODUCT USED FOR UNKNOWN INDICATION
     Dosage: 20 (NO UNITS PROVIDED) DAILY
     Route: 048
  7. TAHOR [Concomitant]
     Active Substance: ATORVASTATIN CALCIUM
     Dosage: 10 MG, 1X/DAY
  8. LASILIX [FUROSEMIDE] [Concomitant]
     Active Substance: FUROSEMIDE
     Dosage: 20 MG, 1X/DAY
  9. FEMARA [Concomitant]
     Active Substance: LETROZOLE
     Dosage: 2.5 MG, 1X/DAY
  10. METFORMIN HYDROCHLORIDE. [Suspect]
     Active Substance: METFORMIN HYDROCHLORIDE
     Dosage: 1000 (NO UNITS PROVIDED) DAILY
  11. AMAREL [Suspect]
     Active Substance: GLIMEPIRIDE
     Dosage: 2 UNK, 1X/DAY
     Route: 048
  12. TAFAMIDIS MEGLUMINE [Suspect]
     Active Substance: TAFAMIDIS MEGLUMINE
     Indication: HEREDITARY NEUROPATHIC AMYLOIDOSIS
     Dosage: 20 MG, UNK
     Route: 048
     Dates: start: 20100127, end: 20100331
  13. LYRICA [Concomitant]
     Active Substance: PREGABALIN
     Dosage: 150 MG 1 DF IN THE MORNING, 1 DF ON MIDDAY, 75 MG CAPSULE, 1 DF IN THE EVENING

REACTIONS (5)
  - Endocarditis [Recovered/Resolved]
  - Acute kidney injury [Recovered/Resolved]
  - Pyelonephritis acute [Recovered/Resolved]
  - Staphylococcal sepsis [Recovered/Resolved]
  - Pyrexia [Recovered/Resolved]

NARRATIVE: CASE EVENT DATE: 20100325
